FAERS Safety Report 13732770 (Version 1)
Quarter: 2017Q3

REPORT INFORMATION
  Report Type: Spontaneous
  Country: US (occurrence: US)
  Receive Date: 20170707
  Receipt Date: 20170707
  Transmission Date: 20171127
  Serious: Yes (Hospitalization)
  Sender: FDA-Public Use
  Company Number: US-ROCHE-1271216

PATIENT
  Age: 55 Year
  Sex: Female

DRUGS (4)
  1. HERCEPTIN [Suspect]
     Active Substance: TRASTUZUMAB
     Indication: BREAST CANCER RECURRENT
     Route: 042
     Dates: start: 20130829
  2. PERJETA [Suspect]
     Active Substance: PERTUZUMAB
     Indication: BREAST CANCER RECURRENT
     Route: 042
     Dates: start: 20130829
  3. DOCETAXEL. [Suspect]
     Active Substance: DOCETAXEL
     Indication: BREAST CANCER RECURRENT
     Dosage: PREVIOUSLY ADMINISTERED AS PART OF A DIFFERENT CHEMOTHERAPY REGIMEN.
     Route: 042
     Dates: start: 2012
  4. DOCETAXEL. [Suspect]
     Active Substance: DOCETAXEL
     Route: 042
     Dates: start: 20130829

REACTIONS (5)
  - Asthenia [Unknown]
  - Diarrhoea [Recovered/Resolved with Sequelae]
  - Chest discomfort [Unknown]
  - Dyspnoea [Unknown]
  - Rash [Not Recovered/Not Resolved]

NARRATIVE: CASE EVENT DATE: 2013
